FAERS Safety Report 8337961-4 (Version None)
Quarter: 2012Q2

REPORT INFORMATION
  Report Type: 
  Country: None (occurrence: None)
  Receive Date: 20120504
  Receipt Date: 20120426
  Transmission Date: 20120825
  Serious: Yes (Other)
  Sender: FDA-Public Use
  Company Number: US-ROXANE LABORATORIES, INC.-2012-RO-01141RO

PATIENT
  Age: 34 Year
  Sex: Female

DRUGS (3)
  1. LAMICTAL [Suspect]
  2. ALPRAZOLAM [Suspect]
     Indication: PANIC ATTACK
  3. ZOLPIDEM [Suspect]
     Indication: INSOMNIA

REACTIONS (1)
  - SOMNAMBULISM [None]
